FAERS Safety Report 15783242 (Version 1)
Quarter: 2019Q1

REPORT INFORMATION
  Report Type: Spontaneous
  Country: US (occurrence: US)
  Receive Date: 20190102
  Receipt Date: 20190102
  Transmission Date: 20190417
  Serious: Yes (Other)
  Sender: FDA-Public Use
  Company Number: US-AMNEAL PHARMACEUTICALS-2018AMN00878

PATIENT

DRUGS (1)
  1. VIGABATRIN. [Suspect]
     Active Substance: VIGABATRIN
     Indication: EPILEPSY
     Dosage: 2X/DAY (1500 MG IN THE MORNING AND 2000 MG IN THE EVENING)
     Route: 048

REACTIONS (2)
  - Prescribed overdose [Unknown]
  - Seizure [Unknown]
